FAERS Safety Report 4346889-6 (Version None)
Quarter: 2004Q1

REPORT INFORMATION
  Report Type: 
  Country: None (occurrence: None)
  Receive Date: 20040329
  Receipt Date: 20031219
  Transmission Date: 20041129
  Serious: No
  Sender: FDA-Public Use
  Company Number: USA031255205

PATIENT
  Sex: Male

DRUGS (1)
  1. STRATTERA [Suspect]
     Dosage: 60 MG
     Dates: start: 20030401

REACTIONS (3)
  - COELIAC DISEASE [None]
  - DYSPNOEA [None]
  - WEIGHT DECREASED [None]
